FAERS Safety Report 6638652-8 (Version None)
Quarter: 2010Q1

REPORT INFORMATION
  Report Type: 
  Country: None (occurrence: None)
  Receive Date: 20100316
  Receipt Date: 20100316
  Transmission Date: 20100710
  Serious: Yes (Hospitalization)
  Sender: FDA-Public Use
  Company Number: None

PATIENT
  Sex: Female
  Weight: 52 kg

DRUGS (8)
  1. FLUOROURACIL [Suspect]
     Dosage: 6550 MG
  2. CISPLATIN [Suspect]
     Dosage: 123 MG
  3. ERBITUX [Suspect]
     Dosage: 688 MG
  4. CLINDAMYCIN GEL [Concomitant]
  5. FENTANYL-75 [Concomitant]
  6. MINOCYCLINE HCL [Concomitant]
  7. NORCO [Concomitant]
  8. ZOFRAN [Concomitant]

REACTIONS (3)
  - BLOOD MAGNESIUM DECREASED [None]
  - HAEMOGLOBIN DECREASED [None]
  - NEUTROPHIL COUNT DECREASED [None]
